FAERS Safety Report 17787971 (Version 2)
Quarter: 2020Q4

REPORT INFORMATION
  Report Type: Spontaneous
  Country: US (occurrence: US)
  Receive Date: 20200515
  Receipt Date: 20201001
  Transmission Date: 20210113
  Serious: Yes (Other)
  Sender: FDA-Public Use
  Company Number: US-ASTRAZENECA-2020SE60829

PATIENT
  Age: 641 Month
  Sex: Female
  Weight: 98.4 kg

DRUGS (30)
  1. PRILOSEC [Suspect]
     Active Substance: OMEPRAZOLE MAGNESIUM
     Indication: GASTROOESOPHAGEAL REFLUX DISEASE
     Route: 048
     Dates: start: 201510, end: 201702
  2. METFORMIN [Concomitant]
     Active Substance: METFORMIN HYDROCHLORIDE
     Indication: DIABETES MELLITUS
     Dates: end: 201907
  3. TEMOVATE [Concomitant]
     Active Substance: CLOBETASOL PROPIONATE
  4. PRILOSEC [Suspect]
     Active Substance: OMEPRAZOLE MAGNESIUM
     Indication: GASTROOESOPHAGEAL REFLUX DISEASE
     Route: 048
     Dates: start: 20151002, end: 20170612
  5. NAPROXEN. [Concomitant]
     Active Substance: NAPROXEN
     Indication: PAIN
  6. NEURONTIN [Concomitant]
     Active Substance: GABAPENTIN
  7. FELDENE [Concomitant]
     Active Substance: PIROXICAM
  8. CONSTULOSE [Concomitant]
     Active Substance: LACTULOSE
  9. PRILOSEC [Suspect]
     Active Substance: OMEPRAZOLE MAGNESIUM
     Indication: GASTROOESOPHAGEAL REFLUX DISEASE
     Route: 048
     Dates: start: 2015, end: 2017
  10. AMLODIPINE [Concomitant]
     Active Substance: AMLODIPINE BESYLATE
     Indication: HYPERTENSION
     Dates: end: 201907
  11. BIOTIN [Concomitant]
     Active Substance: BIOTIN
     Indication: NAIL DISORDER
     Dates: start: 201912
  12. BIOTIN [Concomitant]
     Active Substance: BIOTIN
     Indication: SKIN DISORDER
     Dates: start: 201912
  13. DESYREL [Concomitant]
     Active Substance: TRAZODONE HYDROCHLORIDE
  14. MIRTAZEPINE [Concomitant]
     Active Substance: MIRTAZAPINE
     Indication: DEPRESSION
     Dates: end: 201907
  15. CETRIZINE [Concomitant]
     Active Substance: CETIRIZINE HYDROCHLORIDE
     Indication: MULTIPLE ALLERGIES
     Dates: end: 201812
  16. VALSARTAN. [Concomitant]
     Active Substance: VALSARTAN
     Indication: HYPERTENSION
  17. CLEOCIN [Concomitant]
     Active Substance: CLINDAMYCIN PHOSPHATE
  18. MOTRIN [Concomitant]
     Active Substance: IBUPROFEN
  19. FERROUS SULFATE. [Concomitant]
     Active Substance: FERROUS SULFATE
  20. CENTRUM MULTIVITAMIN [Concomitant]
     Indication: ROUTINE HEALTH MAINTENANCE
     Dates: start: 2019
  21. BIOTIN [Concomitant]
     Active Substance: BIOTIN
     Indication: HAIR DISORDER
     Dates: start: 201912
  22. ULTRAM [Concomitant]
     Active Substance: TRAMADOL HYDROCHLORIDE
  23. FLEXERIL [Concomitant]
     Active Substance: CYCLOBENZAPRINE HYDROCHLORIDE
  24. LEXAPRO [Concomitant]
     Active Substance: ESCITALOPRAM OXALATE
  25. ATORVASTATIN [Concomitant]
     Active Substance: ATORVASTATIN
     Indication: HYPERLIPIDAEMIA
     Dates: end: 201712
  26. TYLENOL WITH CODEINE [Concomitant]
     Active Substance: ACETAMINOPHEN\CODEINE PHOSPHATE
  27. COZAAR [Concomitant]
     Active Substance: LOSARTAN POTASSIUM
  28. HYDROCORTISONE. [Concomitant]
     Active Substance: HYDROCORTISONE
  29. NAPROSYN [Concomitant]
     Active Substance: NAPROXEN
  30. AMBIEN [Concomitant]
     Active Substance: ZOLPIDEM TARTRATE

REACTIONS (1)
  - Chronic kidney disease [Not Recovered/Not Resolved]

NARRATIVE: CASE EVENT DATE: 201903
